FAERS Safety Report 16402064 (Version 2)
Quarter: 2019Q2

REPORT INFORMATION
  Report Type: Spontaneous
  Country: ES (occurrence: ES)
  Receive Date: 20190607
  Receipt Date: 20190626
  Transmission Date: 20190711
  Serious: Yes (Hospitalization)
  Sender: FDA-Public Use
  Company Number: ES-ROCHE-2332924

PATIENT
  Age: 67 Year
  Sex: Female

DRUGS (5)
  1. MYCOPHENOLATE MOFETIL. [Suspect]
     Active Substance: MYCOPHENOLATE MOFETIL
     Indication: PROPHYLAXIS AGAINST GRAFT VERSUS HOST DISEASE
     Route: 048
     Dates: start: 20180923, end: 20181108
  2. TACROLIMUS. [Interacting]
     Active Substance: TACROLIMUS
     Indication: PROPHYLAXIS AGAINST GRAFT VERSUS HOST DISEASE
     Route: 048
     Dates: start: 20180923, end: 20181108
  3. BUSULFAN. [Interacting]
     Active Substance: BUSULFAN
     Indication: NON-HODGKIN^S LYMPHOMA
     Route: 042
     Dates: start: 20180912, end: 20180912
  4. MESNA. [Concomitant]
     Active Substance: MESNA
     Route: 042
     Dates: start: 20180911, end: 20180912
  5. CICLOFOSFAMIDA [Interacting]
     Active Substance: CYCLOPHOSPHAMIDE
     Indication: B-CELL LYMPHOMA
     Route: 042
     Dates: start: 20180911, end: 20180911

REACTIONS (3)
  - Cytomegalovirus infection [Recovered/Resolved]
  - Cystitis haemorrhagic [Recovered/Resolved]
  - BK polyomavirus test positive [Recovered/Resolved]

NARRATIVE: CASE EVENT DATE: 20181108
